FAERS Safety Report 5822817-9 (Version None)
Quarter: 2008Q3

REPORT INFORMATION
  Report Type: 
  Country: None (occurrence: None)
  Receive Date: 20080725
  Receipt Date: 20080715
  Transmission Date: 20090109
  Serious: Yes (Hospitalization, Other)
  Sender: FDA-Public Use
  Company Number: FR-BRISTOL-MYERS SQUIBB COMPANY-14276745

PATIENT
  Age: 56 Year
  Sex: Male

DRUGS (8)
  1. GLUCOPHAGE [Suspect]
     Route: 048
     Dates: end: 20080218
  2. TOLEXINE [Suspect]
     Indication: SWEAT GLAND INFECTION
     Dosage: TABS
     Route: 048
     Dates: start: 20071219, end: 20080218
  3. AMARYL [Suspect]
     Dosage: 3 MG TABLET.
     Route: 048
     Dates: end: 20080218
  4. RAMIPRIL [Concomitant]
  5. PRAVASTATIN [Concomitant]
     Dates: start: 20080104
  6. FLUDEX [Concomitant]
     Dates: start: 20070501
  7. TOPALGIC LP [Concomitant]
     Dosage: 1 DOSAGEFORM = 400 (UNITS NOT SPECIFIED)
  8. LANTUS [Concomitant]

REACTIONS (1)
  - HEPATITIS CHOLESTATIC [None]
